FAERS Safety Report 24045616 (Version 1)
Quarter: 2024Q3

REPORT INFORMATION
  Report Type: Other
  Country: AU (occurrence: AU)
  Receive Date: 20240703
  Receipt Date: 20240703
  Transmission Date: 20241016
  Serious: No
  Sender: TOLMAR
  Company Number: AU-TOLMAR, INC.-24AU050145

PATIENT
  Sex: Male

DRUGS (5)
  1. ELIGARD [Suspect]
     Active Substance: LEUPROLIDE ACETATE
     Indication: Prostate cancer
     Dosage: 22.5 MILLIGRAM, Q 3 MONTH
  2. ELIGARD [Suspect]
     Active Substance: LEUPROLIDE ACETATE
     Indication: Prostate cancer
     Dosage: UNK
  3. NUBEQA [Concomitant]
     Active Substance: DAROLUTAMIDE
     Indication: Product used for unknown indication
     Dosage: 300 MILLIGRAM, BID
     Dates: start: 202405
  4. NUBEQA [Concomitant]
     Active Substance: DAROLUTAMIDE
     Dosage: 3 DOSAGE FORM, QD
  5. NUBEQA [Concomitant]
     Active Substance: DAROLUTAMIDE
     Dosage: 600 MILLIGRAM, BID

REACTIONS (1)
  - Influenza like illness [Unknown]
